FAERS Safety Report 9928774 (Version 3)
Quarter: 2014Q1

REPORT INFORMATION
  Report Type: Spontaneous
  Country: US (occurrence: None)
  Receive Date: 20140225
  Receipt Date: 20140324
  Transmission Date: 20141002
  Serious: No
  Sender: FDA-Public Use
  Company Number: 2014-US-001625

PATIENT
  Age: 52 Year
  Sex: Female
  Weight: 63.5 kg

DRUGS (16)
  1. XYREM [Suspect]
     Indication: NARCOLEPSY
     Route: 048
     Dates: start: 201306
  2. XYREM [Suspect]
     Indication: CATAPLEXY
     Route: 048
     Dates: start: 201306
  3. ASPIRIN (ACETYLSALICYLIC ACID) [Concomitant]
  4. ADVAIR (FLUTICASONE PRIPIONATES, SALMETEROL XINAFOATE) [Concomitant]
  5. WELLBUTRIN (BUPROPION HYDROCHLORIDE) [Concomitant]
  6. FLONASE (FLUTICASONE PROPIONATE) [Concomitant]
  7. LASIX (FUROSEMIDE SODIUM) [Concomitant]
  8. PROVIGIL (MODAFINIL) [Concomitant]
  9. PAXIL (PAROXETINE HYDROCHLORIDE) [Concomitant]
  10. LISINOPRIL (LINISOPRIL) [Concomitant]
  11. SPIRONOLACTONE (SPIRONOLACTONE) [Concomitant]
  12. FISH OIL NATURE MADE  (FISH OIL) [Concomitant]
  13. ASPERCREME (TROLAMINE SALICYLATE) [Concomitant]
  14. ALLEGRA [Concomitant]
  15. SYSTABE (MACROGOL, PROPYFENE GLYCOL) [Concomitant]
  16. POTASSIUM CHLORIDE [Concomitant]

REACTIONS (17)
  - Multiple sclerosis [None]
  - Cardiac failure [None]
  - Insomnia [None]
  - Ligament sprain [None]
  - Sensory disturbance [None]
  - Carpal tunnel syndrome [None]
  - Visual impairment [None]
  - Hyperreflexia [None]
  - Dysuria [None]
  - Thinking abnormal [None]
  - Memory impairment [None]
  - Fall [None]
  - Cataplexy [None]
  - Paraesthesia [None]
  - Chest discomfort [None]
  - Abnormal dreams [None]
  - Sleep paralysis [None]
